FAERS Safety Report 23351629 (Version 1)
Quarter: 2023Q4

REPORT INFORMATION
  Report Type: Report from Study
  Country: CO (occurrence: CO)
  Receive Date: 20231229
  Receipt Date: 20231229
  Transmission Date: 20240110
  Serious: Yes (Other)
  Sender: FDA-Public Use
  Company Number: CO-BIOGEN-2022BI01167715

PATIENT
  Age: 0 Year
  Sex: Female
  Weight: 7.2 kg

DRUGS (4)
  1. SPINRAZA [Suspect]
     Active Substance: NUSINERSEN
     Indication: Spinal muscular atrophy
     Route: 050
     Dates: start: 20221103
  2. ALBUTEROL [Concomitant]
     Active Substance: ALBUTEROL
     Indication: Respiratory therapy
     Dosage: 3 PUFF EVERY 4 HOURS
     Route: 050
     Dates: start: 20221103
  3. ALBUTEROL [Concomitant]
     Active Substance: ALBUTEROL
     Dosage: 3 PUFF EVERY 6 HOURS
     Route: 050
     Dates: start: 20230210, end: 20230214
  4. Cefirax [Concomitant]
     Indication: Product used for unknown indication
     Dosage: 6 DROPS FRO EVERY 12 HOURS
     Route: 050

REACTIONS (11)
  - Developmental hip dysplasia [Not Recovered/Not Resolved]
  - Malaise [Recovered/Resolved]
  - Peroneal nerve palsy [Not Recovered/Not Resolved]
  - Pain [Unknown]
  - Underweight [Not Recovered/Not Resolved]
  - Musculoskeletal stiffness [Recovered/Resolved]
  - Scoliosis [Not Recovered/Not Resolved]
  - Hypokinesia [Not Recovered/Not Resolved]
  - Vitamin D abnormal [Not Recovered/Not Resolved]
  - Pyrexia [Recovered/Resolved]
  - Influenza [Recovered/Resolved]

NARRATIVE: CASE EVENT DATE: 20221101
